FAERS Safety Report 20069013 (Version 2)
Quarter: 2021Q4

REPORT INFORMATION
  Report Type: Spontaneous
  Country: CA (occurrence: CA)
  Receive Date: 20211115
  Receipt Date: 20211210
  Transmission Date: 20220303
  Serious: Yes (Other)
  Sender: FDA-Public Use
  Company Number: CA-PFIZER INC-2021344876

PATIENT
  Age: 61 Year
  Sex: Female
  Weight: 77 kg

DRUGS (11)
  1. INLYTA [Suspect]
     Active Substance: AXITINIB
     Indication: Metastatic renal cell carcinoma
     Dosage: 5 MG, CYCLIC (TWICE A DAY, FOR 21 DAYS)
     Route: 048
     Dates: start: 20210416, end: 20210419
  2. INLYTA [Suspect]
     Active Substance: AXITINIB
     Dosage: 5 MG, CYCLIC (TWICE A DAY, FOR 21 DAYS)
     Route: 048
     Dates: start: 20210422
  3. INLYTA [Suspect]
     Active Substance: AXITINIB
     Dosage: 5 MG, CYCLIC (TWICE A DAY, FOR 21 DAYS)
     Route: 048
     Dates: start: 20210528
  4. INLYTA [Suspect]
     Active Substance: AXITINIB
     Dosage: 2 MG, 2X/DAY (TWICE A DAY, FOR 21 DAYS)
     Route: 048
     Dates: start: 20210709
  5. INLYTA [Suspect]
     Active Substance: AXITINIB
     Dosage: 2 MG, 2X/DAY (TWICE A DAY, FOR 21 DAYS)
     Route: 048
     Dates: start: 20210730
  6. INLYTA [Suspect]
     Active Substance: AXITINIB
     Dosage: 2 MG, 2X/DAY (TWICE A DAY, FOR 21 DAYS)
     Route: 048
     Dates: start: 20210806
  7. CYMBALTA [Concomitant]
     Active Substance: DULOXETINE HYDROCHLORIDE
     Dosage: UNK
  8. KEYTRUDA [Concomitant]
     Active Substance: PEMBROLIZUMAB
     Dosage: UNK
  9. SYNTHROID [Concomitant]
     Active Substance: LEVOTHYROXINE SODIUM
     Dosage: UNK
  10. VITAMIN B COMPLEX [Concomitant]
     Active Substance: CYANOCOBALAMIN\DEXPANTHENOL\NIACINAMIDE\PYRIDOXINE HYDROCHLORIDE\RIBOFLAVIN 5^-PHOSPHATE SODIUM\THIA
     Dosage: UNK
  11. CHOLECALCIFEROL [Concomitant]
     Active Substance: CHOLECALCIFEROL
     Dosage: UNK

REACTIONS (10)
  - Hypertension [Unknown]
  - Hernia [Unknown]
  - Chest pain [Recovered/Resolved]
  - Headache [Recovered/Resolved]
  - Back pain [Recovered/Resolved]
  - Weight decreased [Not Recovered/Not Resolved]
  - Body surface area decreased [Not Recovered/Not Resolved]
  - Hepatic enzyme increased [Unknown]
  - Off label use [Unknown]
  - Product dose omission issue [Unknown]

NARRATIVE: CASE EVENT DATE: 20210401
